FAERS Safety Report 8431920-9 (Version None)
Quarter: 2012Q2

REPORT INFORMATION
  Report Type: 
  Country: None (occurrence: None)
  Receive Date: 20120613
  Receipt Date: 20120604
  Transmission Date: 20120825
  Serious: No
  Sender: FDA-Public Use
  Company Number: US-BAYER-2012-056082

PATIENT
  Age: 34 Year
  Sex: Female

DRUGS (1)
  1. MIRENA [Suspect]
     Indication: CONTRACEPTION
     Dosage: 20 MCG/24HR, CONT
     Route: 015
     Dates: start: 20120531, end: 20120604

REACTIONS (5)
  - DYSPNOEA [None]
  - SWELLING FACE [None]
  - DYSPHAGIA [None]
  - HYPOAESTHESIA [None]
  - ERYTHEMA [None]
